FAERS Safety Report 8309570-4 (Version None)
Quarter: 2012Q2

REPORT INFORMATION
  Report Type: 
  Country: None (occurrence: None)
  Receive Date: 20120425
  Receipt Date: 20120417
  Transmission Date: 20120825
  Serious: Yes (Other)
  Sender: FDA-Public Use
  Company Number: US-PFIZER INC-2012083119

PATIENT
  Sex: Female

DRUGS (4)
  1. ETANERCEPT [Concomitant]
     Dosage: UNK
     Dates: start: 20090301, end: 20111201
  2. TYLENOL (CAPLET) [Concomitant]
     Indication: PAIN
     Dosage: UNK
  3. CELEBREX [Suspect]
     Indication: ANKYLOSING SPONDYLITIS
     Dosage: 200 MG, 2X/DAY
     Route: 048
     Dates: end: 20091201
  4. LEXAPRO [Concomitant]
     Indication: DEPRESSION
     Dosage: UNK

REACTIONS (2)
  - OVARIAN CYST [None]
  - DRUG INEFFECTIVE [None]
